FAERS Safety Report 4979852-2 (Version None)
Quarter: 2006Q2

REPORT INFORMATION
  Report Type: 
  Country: None (occurrence: None)
  Receive Date: 20060421
  Receipt Date: 20060117
  Transmission Date: 20061013
  Serious: Yes (Hospitalization)
  Sender: FDA-Public Use
  Company Number: US-MERCK-0601USA02156

PATIENT
  Age: 68 Year
  Sex: Female
  Weight: 68 kg

DRUGS (17)
  1. VIOXX [Suspect]
     Indication: ARTHRITIS
     Route: 048
     Dates: start: 19991213, end: 20040929
  2. ERY-TAB [Concomitant]
     Route: 065
  3. TRANSDERM SCOP [Concomitant]
     Route: 065
  4. NIASPAN [Concomitant]
     Indication: BLOOD CHOLESTEROL INCREASED
     Route: 065
  5. ACYCLOVIR [Concomitant]
     Indication: HERPES SIMPLEX
     Route: 065
  6. PREDNISONE [Concomitant]
     Route: 065
  7. DESONIDE [Concomitant]
     Route: 065
  8. LIPITOR [Concomitant]
     Indication: BLOOD CHOLESTEROL INCREASED
     Route: 065
     Dates: start: 19980219, end: 20030101
  9. ZITHROMAX [Concomitant]
     Route: 065
  10. COZAAR [Concomitant]
     Indication: HYPERTENSION
     Route: 065
  11. KETOCONAZOLE [Concomitant]
     Route: 065
  12. METRONIDAZOLE [Concomitant]
     Route: 065
  13. HYDROCORTISONE [Concomitant]
     Route: 065
  14. DENAVIR [Concomitant]
     Route: 065
  15. DOXYCYCLINE [Concomitant]
     Route: 065
  16. ASPIRIN [Concomitant]
     Indication: PROPHYLAXIS
     Route: 065
     Dates: start: 19930101
  17. PRAVACHOL [Concomitant]
     Route: 065

REACTIONS (5)
  - ACUTE MYOCARDIAL INFARCTION [None]
  - GASTROENTERITIS [None]
  - HAEMATOMA [None]
  - HYPERTENSION [None]
  - LIMB INJURY [None]
